FAERS Safety Report 13356592 (Version 1)
Quarter: 2017Q1

REPORT INFORMATION
  Report Type: Spontaneous
  Country: SE (occurrence: SE)
  Receive Date: 20170321
  Receipt Date: 20170321
  Transmission Date: 20170429
  Serious: Yes (Other)
  Sender: FDA-Public Use
  Company Number: SE-PFIZER INC-2017117595

PATIENT
  Age: 74 Year
  Sex: Male

DRUGS (2)
  1. FRAGMIN [Suspect]
     Active Substance: DALTEPARIN SODIUM
     Indication: EMBOLISM VENOUS
  2. FRAGMIN [Suspect]
     Active Substance: DALTEPARIN SODIUM
     Indication: VENOUS THROMBOSIS

REACTIONS (4)
  - Haemorrhage [Unknown]
  - Dysuria [Unknown]
  - Urinary bladder haemorrhage [Unknown]
  - Pyelonephritis [Unknown]
